FAERS Safety Report 10616348 (Version 1)
Quarter: 2014Q4

REPORT INFORMATION
  Report Type: Spontaneous
  Country: US (occurrence: None)
  Receive Date: 20141126
  Receipt Date: 20141126
  Transmission Date: 20150529
  Serious: Yes (Hospitalization)
  Sender: FDA-Public Use
  Company Number: None

PATIENT
  Age: 59 Year
  Sex: Female
  Weight: 64.6 kg

DRUGS (12)
  1. AFATINIB [Suspect]
     Active Substance: AFATINIB
     Indication: METASTASES TO CENTRAL NERVOUS SYSTEM
     Dosage: 1 PILL QD ORAL
     Route: 048
  2. HC 1% [Concomitant]
  3. TRIAMCINOLONE ACETONIDE. [Concomitant]
     Active Substance: TRIAMCINOLONE ACETONIDE
  4. WARFARIN [Concomitant]
     Active Substance: WARFARIN
  5. AFATINIB [Suspect]
     Active Substance: AFATINIB
     Indication: LUNG ADENOCARCINOMA STAGE IV
     Dosage: 1 PILL QD ORAL
     Route: 048
  6. DOCUSATE [Concomitant]
     Active Substance: DOCUSATE
  7. AFATINIB [Suspect]
     Active Substance: AFATINIB
     Indication: METASTASES TO BONE
     Dosage: 1 PILL QD ORAL
     Route: 048
  8. OMEPRAZOLE. [Concomitant]
     Active Substance: OMEPRAZOLE
  9. FLONASE [Concomitant]
     Active Substance: FLUTICASONE PROPIONATE
  10. KEPPRA [Concomitant]
     Active Substance: LEVETIRACETAM
  11. NORCO [Concomitant]
     Active Substance: ACETAMINOPHEN\HYDROCODONE BITARTRATE
  12. CIPRO [Concomitant]
     Active Substance: CIPROFLOXACIN HYDROCHLORIDE

REACTIONS (10)
  - Rash [None]
  - Rash pustular [None]
  - Staphylococcal abscess [None]
  - International normalised ratio increased [None]
  - Dermatitis [None]
  - Dermatitis acneiform [None]
  - Pruritus [None]
  - Chills [None]
  - Blood pressure decreased [None]
  - Rash generalised [None]

NARRATIVE: CASE EVENT DATE: 20140330
